FAERS Safety Report 6608602-9 (Version None)
Quarter: 2010Q1

REPORT INFORMATION
  Report Type: 
  Country: None (occurrence: None)
  Receive Date: 20100226
  Receipt Date: 20100226
  Transmission Date: 20100710
  Serious: Yes (Hospitalization)
  Sender: FDA-Public Use
  Company Number: None

PATIENT
  Age: 68 Year
  Sex: Male
  Weight: 81.6475 kg

DRUGS (19)
  1. LORAZEPAM [Suspect]
     Dosage: 3.75MG PO
     Route: 048
  2. RISPERIDONE [Concomitant]
  3. WARFARIN SODIUM [Concomitant]
  4. ALPRAZOLAM [Concomitant]
  5. MIRALAX [Concomitant]
  6. ARICEPT [Concomitant]
  7. OMEPRAZOLE [Concomitant]
  8. LISINOPRIL [Concomitant]
  9. NAMENDA [Concomitant]
  10. LEVOTHYROXINE [Concomitant]
  11. CARBIDOPA-LEVODOPA [Concomitant]
  12. ALBUTEROL SULATE [Concomitant]
  13. FLUOXETINE [Concomitant]
  14. VIT D [Concomitant]
  15. ASPIRIN [Concomitant]
  16. ATENOLOL [Concomitant]
  17. METAMUCIL-2 [Concomitant]
  18. SIMVAXTATIN [Concomitant]
  19. MAG-OX [Concomitant]

REACTIONS (5)
  - EPISTAXIS [None]
  - FACE INJURY [None]
  - FALL [None]
  - LETHARGY [None]
  - SOMNOLENCE [None]
